FAERS Safety Report 6380207-7 (Version None)
Quarter: 2009Q3

REPORT INFORMATION
  Report Type: 
  Country: None (occurrence: None)
  Receive Date: 20090923
  Receipt Date: 20090908
  Transmission Date: 20100115
  Serious: Yes (Other)
  Sender: FDA-Public Use
  Company Number: 1-19798327

PATIENT
  Sex: Male

DRUGS (1)
  1. CITALOPRAM (STRENGTH AND MANUFACTURER UNKNOWN) [Suspect]
     Dosage: 30 MG DAILY, ORAL
     Route: 048

REACTIONS (1)
  - RETINAL VEIN OCCLUSION [None]
